FAERS Safety Report 25113547 (Version 1)
Quarter: 2025Q1

REPORT INFORMATION
  Report Type: Spontaneous
  Country: US (occurrence: None)
  Receive Date: 20250322
  Receipt Date: 20250322
  Transmission Date: 20250409
  Serious: No
  Sender: FDA-CTU
  Company Number: None

PATIENT
  Age: 27 Year
  Sex: Female
  Weight: 74.25 kg

DRUGS (2)
  1. MONISTAT 3 [Suspect]
     Active Substance: MICONAZOLE NITRATE
     Indication: Vulvovaginal mycotic infection
     Dosage: OTHER QUANTITY : 3 APPLICATORS;?FREQUENCY : AT BEDTIME;?
     Route: 067
     Dates: start: 20250322, end: 20250322
  2. Nexplanon arm implant (birth control) [Concomitant]

REACTIONS (3)
  - Vulvovaginal burning sensation [None]
  - Vulvovaginal pruritus [None]
  - Discomfort [None]

NARRATIVE: CASE EVENT DATE: 20250322
